FAERS Safety Report 9985771 (Version 1)
Quarter: 2014Q1

REPORT INFORMATION
  Report Type: Report from Study
  Country: US (occurrence: US)
  Receive Date: 20140307
  Receipt Date: 20140307
  Transmission Date: 20141002
  Serious: No
  Sender: FDA-Public Use
  Company Number: US-ABBVIE-13P-163-1087726-00

PATIENT
  Age: 75 Year
  Sex: Female

DRUGS (20)
  1. HUMIRA [Suspect]
     Indication: RHEUMATOID ARTHRITIS
     Dates: start: 20130407
  2. BISOPROLOL HCT [Concomitant]
     Indication: FLUID RETENTION
     Dosage: 2.5MG-6.25MG DAILY
  3. BISOPROLOL HCT [Concomitant]
     Indication: HYPERTENSION
  4. ZOCOR [Concomitant]
     Indication: BLOOD CHOLESTEROL INCREASED
  5. FLEXERIL [Concomitant]
     Indication: MUSCLE SPASMS
  6. FOLIC ACID [Concomitant]
     Indication: PRODUCT USED FOR UNKNOWN INDICATION
  7. METHOTREXATE [Concomitant]
     Indication: RHEUMATOID ARTHRITIS
     Dosage: 8 EVERY MONDAY
  8. PREDNISONE [Concomitant]
     Indication: RHEUMATOID ARTHRITIS
  9. FUROSEMIDE [Concomitant]
     Indication: FLUID RETENTION
  10. ASA [Concomitant]
     Indication: THROMBOSIS
  11. VITAMIN B COMPLEX [Concomitant]
     Indication: PRODUCT USED FOR UNKNOWN INDICATION
     Dosage: DAILY
  12. VITAMIN C [Concomitant]
     Indication: PRODUCT USED FOR UNKNOWN INDICATION
     Dosage: DAILY
  13. VIT 3 [Concomitant]
     Indication: PRODUCT USED FOR UNKNOWN INDICATION
  14. TUMS [Concomitant]
     Indication: GASTROOESOPHAGEAL REFLUX DISEASE
     Dosage: 3 TIMES DAILY
  15. TUMS [Concomitant]
     Indication: BLOOD CALCIUM
  16. CLARITIN [Concomitant]
     Indication: SEASONAL ALLERGY
  17. ZANTAC [Concomitant]
     Indication: GASTROOESOPHAGEAL REFLUX DISEASE
  18. COLACE [Concomitant]
     Indication: CONSTIPATION
  19. EVENING PRIMROSE OIL [Concomitant]
     Indication: HOT FLUSH
  20. FIBER CHOICE [Concomitant]
     Indication: CONSTIPATION
     Dosage: 5 DAILY

REACTIONS (3)
  - Blood potassium decreased [Unknown]
  - Injection site pain [Recovered/Resolved]
  - Arthralgia [Unknown]
